FAERS Safety Report 19669570 (Version 4)
Quarter: 2021Q3

REPORT INFORMATION
  Report Type: Spontaneous
  Country: US (occurrence: US)
  Receive Date: 20210806
  Receipt Date: 20210825
  Transmission Date: 20211014
  Serious: Yes (Other)
  Sender: FDA-Public Use
  Company Number: US-UNITED THERAPEUTICS-UNT-2021-013516

PATIENT
  Sex: Female
  Weight: 44.9 kg

DRUGS (5)
  1. OPSUMIT [Concomitant]
     Active Substance: MACITENTAN
     Indication: PRODUCT USED FOR UNKNOWN INDICATION
     Dosage: UNK
     Route: 065
  2. REMODULIN [Suspect]
     Active Substance: TREPROSTINIL
     Indication: PULMONARY ARTERIAL HYPERTENSION
     Dosage: UNK, CONTINUING
     Route: 058
     Dates: start: 20210311
  3. SILDENAFIL CITRATE. [Concomitant]
     Active Substance: SILDENAFIL CITRATE
     Indication: PRODUCT USED FOR UNKNOWN INDICATION
     Dosage: UNK
     Route: 065
  4. REMODULIN [Suspect]
     Active Substance: TREPROSTINIL
     Dosage: 0.016 ?G/KG, CONTINUING
     Route: 058
     Dates: start: 2021
  5. REMODULIN [Suspect]
     Active Substance: TREPROSTINIL
     Dosage: UNK, CONTINUING
     Route: 058
     Dates: start: 2021

REACTIONS (23)
  - Ear pain [Unknown]
  - Peripheral swelling [Unknown]
  - Abdominal pain upper [Unknown]
  - Ocular discomfort [Unknown]
  - Flushing [Unknown]
  - Arthralgia [Unknown]
  - Groin pain [Unknown]
  - Dyspnoea exertional [Unknown]
  - Diarrhoea [Unknown]
  - Hypoaesthesia [Unknown]
  - Joint swelling [Unknown]
  - Sinusitis [Unknown]
  - Infusion site pain [Unknown]
  - Erythema [Unknown]
  - Blood pressure abnormal [Unknown]
  - Headache [Unknown]
  - Sensitivity to weather change [Unknown]
  - Chest pain [Unknown]
  - Infusion site erythema [Not Recovered/Not Resolved]
  - Abdominal distension [Unknown]
  - Device dislocation [Unknown]
  - Infusion site haemorrhage [Unknown]
  - Infusion site pruritus [Unknown]

NARRATIVE: CASE EVENT DATE: 2021
